FAERS Safety Report 15988654 (Version 1)
Quarter: 2019Q1

REPORT INFORMATION
  Report Type: Spontaneous
  Country: FI (occurrence: FI)
  Receive Date: 20190221
  Receipt Date: 20190221
  Transmission Date: 20190418
  Serious: Yes (Disabling)
  Sender: FDA-Public Use
  Company Number: FI-ACCORD-107985

PATIENT
  Age: 73 Year
  Sex: Female

DRUGS (2)
  1. COHEMIN DEPOT [Concomitant]
     Indication: CHRONIC GASTRITIS
  2. ESCITALOPRAM [Suspect]
     Active Substance: ESCITALOPRAM OXALATE
     Indication: DEPRESSION
     Dosage: 10,MG,DAILY
     Route: 048
     Dates: start: 2016, end: 201807

REACTIONS (7)
  - Musculoskeletal pain [Unknown]
  - Paraesthesia [Unknown]
  - Pain in extremity [Unknown]
  - Sleep disorder [Unknown]
  - Back pain [Unknown]
  - Myalgia [Unknown]
  - Hypoaesthesia [Unknown]

NARRATIVE: CASE EVENT DATE: 2016
